FAERS Safety Report 14985698 (Version 2)
Quarter: 2018Q2

REPORT INFORMATION
  Report Type: Spontaneous
  Country: GB (occurrence: GB)
  Receive Date: 20180607
  Receipt Date: 20180621
  Transmission Date: 20180711
  Serious: Yes (Hospitalization, Congenital Anomaly, Other)
  Sender: FDA-Public Use
  Company Number: GB-TAKEDA-2018TEU003158

PATIENT
  Age: 3 Month
  Sex: Male
  Weight: 7.4 kg

DRUGS (23)
  1. SERTRALINE HCL [Suspect]
     Active Substance: SERTRALINE HYDROCHLORIDE
     Indication: PRODUCT USED FOR UNKNOWN INDICATION
     Dosage: 100 MG, BID
     Route: 064
  2. SERTRALINE HCL [Suspect]
     Active Substance: SERTRALINE HYDROCHLORIDE
     Dosage: 200 MG, QD
     Route: 064
  3. PROCHLORPERAZINE. [Concomitant]
     Active Substance: PROCHLORPERAZINE
     Indication: FOETAL EXPOSURE DURING PREGNANCY
     Dosage: 5 MG, UNK
     Route: 064
  4. CLOBAZAM [Concomitant]
     Active Substance: CLOBAZAM
     Indication: FOETAL EXPOSURE DURING PREGNANCY
     Dosage: UNK
     Route: 064
  5. BETAMETHASONE. [Concomitant]
     Active Substance: BETAMETHASONE
     Indication: FOETAL EXPOSURE DURING PREGNANCY
     Dosage: 0.1 %, BID
     Route: 064
     Dates: start: 20090722
  6. OMEPRAZOLE. [Concomitant]
     Active Substance: OMEPRAZOLE
     Indication: FOETAL EXPOSURE DURING PREGNANCY
     Dosage: 20 MG, QD
     Route: 064
     Dates: start: 20090501
  7. AMOXICILLIN TRIHYDRATE [Concomitant]
     Active Substance: AMOXICILLIN
     Dosage: UNK UNK, QD
     Route: 064
     Dates: start: 20100328
  8. CHLORAMPHENICOL [Concomitant]
     Active Substance: CHLORAMPHENICOL
     Indication: FOETAL EXPOSURE DURING PREGNANCY
     Dosage: 0.5 %, QID
     Route: 064
  9. LAMICTAL [Suspect]
     Active Substance: LAMOTRIGINE
     Indication: FOETAL EXPOSURE DURING PREGNANCY
     Dosage: 400 MG, BID
     Route: 064
     Dates: start: 2004
  10. LAMICTAL [Suspect]
     Active Substance: LAMOTRIGINE
     Dosage: 800 MG, QD
     Route: 064
  11. PROPRANOLOL HYDROCHLORIDE. [Suspect]
     Active Substance: PROPRANOLOL HYDROCHLORIDE
     Indication: FOETAL EXPOSURE DURING PREGNANCY
     Dosage: 10 MG, UNK
     Route: 064
  12. LIDOCAINE. [Concomitant]
     Active Substance: LIDOCAINE
     Indication: FOETAL EXPOSURE DURING PREGNANCY
     Dosage: UNK
     Route: 064
  13. LANSOPRAZOLE. [Suspect]
     Active Substance: LANSOPRAZOLE
     Indication: PRODUCT USED FOR UNKNOWN INDICATION
     Dosage: 30 MG, UNK
     Route: 064
  14. MICONAZOLE. [Concomitant]
     Active Substance: MICONAZOLE
     Indication: FOETAL EXPOSURE DURING PREGNANCY
     Dosage: UNK
     Route: 064
  15. ARIPIPRAZOLE. [Suspect]
     Active Substance: ARIPIPRAZOLE
     Indication: FOETAL EXPOSURE DURING PREGNANCY
     Dosage: 30 MG, 1/WEEK
     Route: 064
  16. FOLIC ACID. [Concomitant]
     Active Substance: FOLIC ACID
     Indication: FOETAL EXPOSURE DURING PREGNANCY
     Dosage: 5 MG, UNK
     Route: 064
     Dates: start: 20091130
  17. AMOXICILLIN TRIHYDRATE [Concomitant]
     Active Substance: AMOXICILLIN
     Indication: FOETAL EXPOSURE DURING PREGNANCY
     Dosage: 500 MG, TID
     Route: 064
     Dates: start: 20091023
  18. PROCHLORPERAZINE. [Concomitant]
     Active Substance: PROCHLORPERAZINE
     Dosage: 5 MG, UNK
     Route: 064
     Dates: start: 20091221
  19. LACTULOSE. [Concomitant]
     Active Substance: LACTULOSE
     Indication: FOETAL EXPOSURE DURING PREGNANCY
     Dosage: UNK UNK, QD
     Route: 064
     Dates: start: 20090506
  20. DIHYDROCODEINE [Suspect]
     Active Substance: DIHYDROCODEINE
     Indication: FOETAL EXPOSURE DURING PREGNANCY
     Dosage: 30 MG, TID
     Route: 064
  21. CHLORAMPHENICOL [Concomitant]
     Active Substance: CHLORAMPHENICOL
     Dosage: 5 %, QID
     Route: 064
  22. NORETHISTERONE [Suspect]
     Active Substance: NORETHINDRONE
     Indication: FOETAL EXPOSURE DURING PREGNANCY
     Dosage: 350 MG, UNK
     Route: 064
  23. DICLOFENAC SODIUM. [Concomitant]
     Active Substance: DICLOFENAC SODIUM
     Indication: FOETAL EXPOSURE DURING PREGNANCY
     Dosage: 50 MG, TID
     Route: 064
     Dates: start: 20090501

REACTIONS (4)
  - Maternal exposure during pregnancy [Unknown]
  - Atrial septal defect [Recovered/Resolved]
  - Ventricular septal defect [Recovered/Resolved]
  - Premature baby [Recovered/Resolved]

NARRATIVE: CASE EVENT DATE: 20090902
